FAERS Safety Report 13518385 (Version 1)
Quarter: 2017Q2

REPORT INFORMATION
  Report Type: Spontaneous
  Country: US (occurrence: US)
  Receive Date: 20170505
  Receipt Date: 20170505
  Transmission Date: 20170830
  Serious: Yes (Disabling)
  Sender: FDA-Public Use
  Company Number: None

PATIENT
  Age: 6 Year
  Sex: Male
  Weight: 18 kg

DRUGS (4)
  1. MIRALAX [Suspect]
     Active Substance: POLYETHYLENE GLYCOL 3350
     Indication: CONSTIPATION
     Dosage: QUANTITY:1 SPOONFUL IN MILK;?
     Route: 048
     Dates: start: 20161201, end: 20170201
  2. MIRALAX [Suspect]
     Active Substance: POLYETHYLENE GLYCOL 3350
     Indication: ABDOMINAL PAIN
     Dosage: QUANTITY:1 SPOONFUL IN MILK;?
     Route: 048
     Dates: start: 20161201, end: 20170201
  3. MIRALAX [Suspect]
     Active Substance: POLYETHYLENE GLYCOL 3350
     Indication: PRODUCT USED FOR UNKNOWN INDICATION
     Dosage: QUANTITY:1 SPOONFUL IN MILK;?
     Route: 048
     Dates: start: 20161201, end: 20170201
  4. CULTURELLE PROBIOTICS TASTELESS ODORLESS POWDER PACKETS FOR KIDS [Concomitant]

REACTIONS (5)
  - Fear [None]
  - Anxiety [None]
  - Panic attack [None]
  - Anger [None]
  - Mood swings [None]

NARRATIVE: CASE EVENT DATE: 20161201
